FAERS Safety Report 6907067-7 (Version None)
Quarter: 2010Q3

REPORT INFORMATION
  Report Type: 
  Country: None (occurrence: None)
  Receive Date: 20100804
  Receipt Date: 20080707
  Transmission Date: 20110219
  Serious: Yes (Other)
  Sender: FDA-Public Use
  Company Number: GB-PFIZER INC-2008052259

PATIENT
  Sex: Male
  Weight: 69.8 kg

DRUGS (7)
  1. MARAVIROC [Suspect]
     Indication: HIV INFECTION
     Route: 048
     Dates: start: 20070920, end: 20080513
  2. TRUVADA [Concomitant]
     Route: 048
     Dates: start: 20070920
  3. NEVIRAPINE [Concomitant]
     Route: 048
     Dates: start: 20070920
  4. RALTEGRAVIR [Concomitant]
     Route: 048
     Dates: start: 20070920
  5. DAPSONE [Concomitant]
     Route: 048
     Dates: start: 19921101
  6. DOMPERIDONE [Concomitant]
     Route: 048
     Dates: start: 20070917
  7. MARAVIROC [Concomitant]
     Route: 048
     Dates: start: 20080513

REACTIONS (1)
  - RECTAL CANCER [None]
